FAERS Safety Report 4593018-X (Version None)
Quarter: 2005Q1

REPORT INFORMATION
  Report Type: 
  Country: None (occurrence: None)
  Receive Date: 20050228
  Receipt Date: 20050221
  Transmission Date: 20050727
  Serious: Yes (Death, Hospitalization)
  Sender: FDA-Public Use
  Company Number: US-ABBOTT-05P-163-0291613-00

PATIENT
  Sex: Male

DRUGS (1)
  1. VICODIN [Suspect]
     Indication: BACK DISORDER
     Route: 048

REACTIONS (3)
  - HAEMOPTYSIS [None]
  - HEPATOCELLULAR DAMAGE [None]
  - OCULAR ICTERUS [None]
